FAERS Safety Report 17562629 (Version 1)
Quarter: 2020Q1

REPORT INFORMATION
  Report Type: Spontaneous
  Country: IT (occurrence: IT)
  Receive Date: 20200319
  Receipt Date: 20200319
  Transmission Date: 20200409
  Serious: Yes (Life-Threatening)
  Sender: FDA-Public Use
  Company Number: IT-NAPPMUNDI-GBR-2020-0075722

PATIENT
  Age: 40 Year
  Sex: Female
  Weight: 50 kg

DRUGS (1)
  1. OXYCODONE HYDROCHLORIDE. [Suspect]
     Active Substance: OXYCODONE HYDROCHLORIDE
     Indication: PAIN
     Dosage: 240 MG, UNK (TOTAL)
     Route: 048
     Dates: start: 20200213, end: 20200213

REACTIONS (4)
  - Sopor [Recovering/Resolving]
  - Medication error [Recovering/Resolving]
  - Coma [Recovering/Resolving]
  - Bradypnoea [Recovering/Resolving]

NARRATIVE: CASE EVENT DATE: 20200213
